FAERS Safety Report 7040016-2 (Version None)
Quarter: 2010Q4

REPORT INFORMATION
  Report Type: 
  Country: None (occurrence: None)
  Receive Date: 20101012
  Receipt Date: 20101004
  Transmission Date: 20110411
  Serious: Yes (Life-Threatening, Hospitalization, Disabling, Other)
  Sender: FDA-Public Use
  Company Number: CA-ABBOTT-10P-028-0665689-00

PATIENT
  Age: 39 Year
  Sex: Female
  Weight: 82 kg

DRUGS (7)
  1. HUMIRA [Suspect]
     Indication: COLITIS ULCERATIVE
     Dosage: 180 MG FIRST DOSE
     Route: 058
     Dates: start: 20090928, end: 20090928
  2. HUMIRA [Suspect]
     Dosage: 80 MG SECOND DOSE
     Route: 058
     Dates: start: 20091011, end: 20091011
  3. HUMIRA [Suspect]
     Dosage: 180MG 1ST DOSE
     Route: 058
     Dates: start: 20090928
  4. GRAVOL TAB [Concomitant]
     Indication: PRODUCT USED FOR UNKNOWN INDICATION
  5. METOCLOPRAMIDE [Concomitant]
     Indication: PRODUCT USED FOR UNKNOWN INDICATION
  6. PURINETHOL [Concomitant]
     Indication: PRODUCT USED FOR UNKNOWN INDICATION
  7. TRIQUILAR 28 [Concomitant]
     Indication: PRODUCT USED FOR UNKNOWN INDICATION
     Dosage: 1 CO DAILY
     Route: 048

REACTIONS (7)
  - BLOOD CREATININE INCREASED [None]
  - CEREBRAL ARTERY EMBOLISM [None]
  - CEREBROVASCULAR ACCIDENT [None]
  - HEPARIN-INDUCED THROMBOCYTOPENIA [None]
  - PULMONARY EMBOLISM [None]
  - RENAL EMBOLISM [None]
  - RENAL FAILURE ACUTE [None]
